FAERS Safety Report 19278910 (Version 1)
Quarter: 2021Q2

REPORT INFORMATION
  Report Type: Spontaneous
  Country: US (occurrence: US)
  Receive Date: 20210520
  Receipt Date: 20210520
  Transmission Date: 20210717
  Serious: Yes (Other)
  Sender: FDA-Public Use
  Company Number: US-AMGEN-USASP2021076131

PATIENT
  Age: 56 Year
  Sex: Male

DRUGS (2)
  1. ROSUVASTATIN. [Concomitant]
     Active Substance: ROSUVASTATIN
     Indication: LIPIDS INCREASED
     Dosage: UNK
  2. EVOLOCUMAB [Suspect]
     Active Substance: EVOLOCUMAB
     Indication: LIPIDS INCREASED
     Dosage: UNK
     Route: 065

REACTIONS (1)
  - Acute coronary syndrome [Unknown]
